FAERS Safety Report 5531088-2 (Version None)
Quarter: 2007Q4

REPORT INFORMATION
  Report Type: 
  Country: None (occurrence: None)
  Receive Date: 20071130
  Receipt Date: 20071125
  Transmission Date: 20080405
  Serious: Yes (Other)
  Sender: FDA-Public Use
  Company Number: US-BOEHRINGER INGELHEIM PHARMACEUTICALS, INC.-2007-BP-25114PF

PATIENT
  Sex: Female
  Weight: 68 kg

DRUGS (4)
  1. SPIRIVA [Suspect]
     Indication: DYSPNOEA
     Route: 055
     Dates: start: 20070101
  2. CHANTIX [Suspect]
     Indication: SMOKING CESSATION THERAPY
     Dates: start: 20070925
  3. CHANTIX [Concomitant]
     Dates: start: 20070925
  4. SYMBICORT [Concomitant]
     Indication: DYSPNOEA
     Dates: start: 20070101

REACTIONS (8)
  - ANXIETY [None]
  - DEPRESSION [None]
  - DRUG INEFFECTIVE [None]
  - DYSPNOEA [None]
  - GASTROOESOPHAGEAL REFLUX DISEASE [None]
  - LUNG DISORDER [None]
  - MARITAL PROBLEM [None]
  - SUICIDAL IDEATION [None]
